FAERS Safety Report 22915822 (Version 3)
Quarter: 2024Q1

REPORT INFORMATION
  Report Type: Report from Study
  Country: JP (occurrence: JP)
  Receive Date: 20230907
  Receipt Date: 20240306
  Transmission Date: 20240410
  Serious: Yes (Disabling, Other)
  Sender: FDA-Public Use
  Company Number: JP-ASTELLAS-2022JP009308

PATIENT
  Age: 61 Year
  Sex: Male

DRUGS (7)
  1. ENFORTUMAB VEDOTIN [Suspect]
     Active Substance: ENFORTUMAB VEDOTIN
     Indication: Bladder cancer
     Dosage: 1.25 MG/KG, ADMINISTERED ONCE WEEKLY FOR 3 CONSECUTIVE WEEKS, AND INTERRUPTED AT WEEK 4
     Route: 041
     Dates: start: 20220314, end: 20220711
  2. ENFORTUMAB VEDOTIN [Suspect]
     Active Substance: ENFORTUMAB VEDOTIN
     Dosage: 1.25 MG/KG, ADMINISTERED ONCE WEEKLY FOR 3 CONSECUTIVE WEEKS, AND INTERRUPTED AT WEEK 4
     Route: 041
     Dates: start: 20220725, end: 20220801
  3. ENFORTUMAB VEDOTIN [Suspect]
     Active Substance: ENFORTUMAB VEDOTIN
     Dosage: 1.25 MG/KG, ADMINISTERED ONCE WEEKLY FOR 3 CONSECUTIVE WEEKS, AND INTERRUPTED AT WEEK 4
     Route: 041
     Dates: start: 20220815, end: 20220912
  4. ENFORTUMAB VEDOTIN [Suspect]
     Active Substance: ENFORTUMAB VEDOTIN
     Dosage: 1.25 MG/KG, ADMINISTERED ONCE WEEKLY FOR 3 CONSECUTIVE WEEKS, AND INTERRUPTED AT WEEK 4
     Route: 041
     Dates: start: 20220926, end: 20221003
  5. ENFORTUMAB VEDOTIN [Suspect]
     Active Substance: ENFORTUMAB VEDOTIN
     Dosage: 1.25 MG/KG, ADMINISTERED ONCE WEEKLY FOR 3 CONSECUTIVE WEEKS, AND INTERRUPTED AT WEEK 4
     Route: 041
     Dates: start: 20221017, end: 20221031
  6. ENFORTUMAB VEDOTIN [Suspect]
     Active Substance: ENFORTUMAB VEDOTIN
     Dosage: 1.25 MG/KG, ADMINISTERED ONCE WEEKLY FOR 3 CONSECUTIVE WEEKS, AND INTERRUPTED AT WEEK 4
     Route: 041
     Dates: start: 20221121, end: 20221226
  7. ENFORTUMAB VEDOTIN [Suspect]
     Active Substance: ENFORTUMAB VEDOTIN
     Dosage: 1.25 MG/KG, ADMINISTERED ONCE WEEKLY FOR 3 CONSECUTIVE WEEKS, AND INTERRUPTED AT WEEK 4
     Route: 041
     Dates: start: 20230116

REACTIONS (5)
  - Taste disorder [Not Recovered/Not Resolved]
  - Neuropathy peripheral [Recovered/Resolved with Sequelae]
  - Vision blurred [Recovering/Resolving]
  - Eye discharge [Recovered/Resolved]
  - Inappropriate schedule of product administration [Unknown]

NARRATIVE: CASE EVENT DATE: 20220509
